FAERS Safety Report 23380636 (Version 2)
Quarter: 2024Q3

REPORT INFORMATION
  Report Type: Spontaneous
  Country: JP (occurrence: JP)
  Receive Date: 20240109
  Receipt Date: 20240731
  Transmission Date: 20241017
  Serious: Yes (Other)
  Sender: ADVANZ PHARMA
  Company Number: JP-SA-2023SA401139

PATIENT

DRUGS (1)
  1. HYDROXYCHLOROQUINE SULFATE [Suspect]
     Active Substance: HYDROXYCHLOROQUINE SULFATE
     Indication: Product used for unknown indication
     Dosage: UNK (FILM-COATED TABLET)
     Route: 048

REACTIONS (1)
  - Acquired pigmented retinopathy [Recovering/Resolving]
